FAERS Safety Report 8603551-9 (Version None)
Quarter: 2012Q3

REPORT INFORMATION
  Report Type: 
  Country: None (occurrence: None)
  Receive Date: 20120817
  Receipt Date: 20120814
  Transmission Date: 20120928
  Serious: Yes (Hospitalization)
  Sender: FDA-Public Use
  Company Number: CA-ROCHE-1097234

PATIENT
  Sex: Male
  Weight: 100 kg

DRUGS (5)
  1. ACTEMRA [Suspect]
     Dates: start: 20120515
  2. ACTONEL [Concomitant]
  3. PREDNISONE TAB [Concomitant]
  4. ACTEMRA [Suspect]
     Indication: RHEUMATOID ARTHRITIS
     Route: 042
     Dates: start: 20120426, end: 20120627
  5. OMEPRAZOLE [Concomitant]

REACTIONS (12)
  - FOAMING AT MOUTH [None]
  - DIARRHOEA HAEMORRHAGIC [None]
  - COLITIS [None]
  - PALLOR [None]
  - BLOOD PRESSURE DECREASED [None]
  - HYPERHIDROSIS [None]
  - EYE MOVEMENT DISORDER [None]
  - DIARRHOEA [None]
  - RESPIRATORY ARREST [None]
  - PULSE ABSENT [None]
  - PAIN IN EXTREMITY [None]
  - DEHYDRATION [None]
